FAERS Safety Report 17893801 (Version 1)
Quarter: 2020Q2

REPORT INFORMATION
  Report Type: Spontaneous
  Country: US (occurrence: US)
  Receive Date: 20200615
  Receipt Date: 20200615
  Transmission Date: 20200714
  Serious: Yes (Other)
  Sender: FDA-Public Use
  Company Number: US-AMGEN-USASP2020092896

PATIENT
  Age: 65 Year
  Sex: Female

DRUGS (1)
  1. REPATHA [Suspect]
     Active Substance: EVOLOCUMAB
     Indication: HYPERLIPIDAEMIA
     Dosage: 140 MILLIGRAM, Q2WK
     Route: 065
     Dates: start: 202004, end: 202005

REACTIONS (7)
  - Myalgia [Unknown]
  - Sleep disorder due to a general medical condition [Unknown]
  - Blood pressure decreased [Unknown]
  - Breast pain [Recovering/Resolving]
  - Headache [Unknown]
  - Angina pectoris [Unknown]
  - Cardiac flutter [Unknown]

NARRATIVE: CASE EVENT DATE: 2020
